FAERS Safety Report 7589543-X (Version None)
Quarter: 2011Q3

REPORT INFORMATION
  Report Type: 
  Country: None (occurrence: None)
  Receive Date: 20110705
  Receipt Date: 20110630
  Transmission Date: 20111222
  Serious: Yes (Other)
  Sender: FDA-Public Use
  Company Number: US-PFIZER INC-2011146719

PATIENT
  Sex: Female

DRUGS (2)
  1. LIPITOR [Suspect]
     Dosage: UNK
  2. LEVIMER [Concomitant]
     Dosage: 10 DF, 1X/DAY

REACTIONS (4)
  - HYPERTENSION [None]
  - GAIT DISTURBANCE [None]
  - DRUG INEFFECTIVE [None]
  - HYPOTENSION [None]
